FAERS Safety Report 9646699 (Version 3)
Quarter: 2014Q2

REPORT INFORMATION
  Report Type: Spontaneous
  Country: US (occurrence: US)
  Receive Date: 20131027
  Receipt Date: 20140418
  Transmission Date: 20141212
  Serious: Yes (Other)
  Sender: FDA-Public Use
  Company Number: US-NAPPMUNDI-USA-2012-0094509

PATIENT
  Sex: Male

DRUGS (5)
  1. OXYCONTIN (NDA 22-272) [Suspect]
     Indication: DRUG ABUSE
     Route: 048
  2. ALCOHOL [Suspect]
     Indication: SUBSTANCE ABUSE
  3. MARIJUANA [Suspect]
     Indication: SUBSTANCE ABUSE
  4. COCAINE [Suspect]
     Indication: SUBSTANCE ABUSE
  5. COUGH SYRUP [Suspect]
     Indication: DRUG ABUSE

REACTIONS (2)
  - Drug dependence [Recovered/Resolved]
  - Substance abuse [Recovered/Resolved]
